FAERS Safety Report 12082687 (Version 1)
Quarter: 2016Q1

REPORT INFORMATION
  Report Type: Spontaneous
  Country: US (occurrence: None)
  Receive Date: 20160212
  Receipt Date: 20160212
  Transmission Date: 20160526
  Serious: No
  Sender: FDA-Public Use
  Company Number: None

PATIENT
  Age: 47 Year
  Sex: Male
  Weight: 90.27 kg

DRUGS (1)
  1. SANCUSO [Suspect]
     Active Substance: GRANISETRON
     Indication: NAUSEA
     Dosage: EVERY 7 DAYS, APPLIED TO A SURFACE, USUALLY THE SKIN

REACTIONS (1)
  - Application site pruritus [None]
